FAERS Safety Report 5007727-1 (Version None)
Quarter: 2006Q2

REPORT INFORMATION
  Report Type: 
  Country: None (occurrence: None)
  Receive Date: 20060403
  Receipt Date: 20051215
  Transmission Date: 20061013
  Serious: Yes (Hospitalization)
  Sender: FDA-Public Use
  Company Number: 2005EN000525

PATIENT
  Age: 17 Year
  Sex: Male
  Weight: 81.6475 kg

DRUGS (6)
  1. ONCASPAR [Suspect]
     Indication: ACUTE LYMPHOCYTIC LEUKAEMIA
     Dosage: QM, IM
     Route: 030
     Dates: start: 20050509, end: 20050509
  2. ONCASPAR [Suspect]
     Indication: ACUTE LYMPHOCYTIC LEUKAEMIA
     Dosage: QM, IM
     Route: 030
     Dates: start: 20050630, end: 20050630
  3. ONCASPAR [Suspect]
     Indication: ACUTE LYMPHOCYTIC LEUKAEMIA
     Dosage: QM, IM
     Route: 030
     Dates: start: 20050726, end: 20050726
  4. ONCASPAR [Suspect]
     Indication: ACUTE LYMPHOCYTIC LEUKAEMIA
     Dosage: QM, IM
     Route: 030
     Dates: start: 20050801, end: 20050801
  5. ONCASPAR [Suspect]
     Indication: ACUTE LYMPHOCYTIC LEUKAEMIA
     Dosage: QM, IM
     Route: 030
     Dates: start: 20050901, end: 20050901
  6. ONCASPAR [Suspect]
     Indication: ACUTE LYMPHOCYTIC LEUKAEMIA
     Dosage: QM, IM
     Route: 030
     Dates: start: 20051028, end: 20051028

REACTIONS (2)
  - DEEP VEIN THROMBOSIS [None]
  - THROMBOPHLEBITIS SUPERFICIAL [None]
